FAERS Safety Report 4868199-0 (Version None)
Quarter: 2005Q4

REPORT INFORMATION
  Report Type: 
  Country: None (occurrence: None)
  Receive Date: 20051227
  Receipt Date: 20051206
  Transmission Date: 20060501
  Serious: Yes (Hospitalization)
  Sender: FDA-Public Use
  Company Number: 200510776

PATIENT
  Age: 3 Year
  Sex: Female
  Weight: 16 kg

DRUGS (5)
  1. BOTOX [Suspect]
     Indication: DYSTONIA
     Dates: start: 20050929
  2. BOTOX [Suspect]
     Indication: MUSCLE SPASTICITY
     Dates: start: 20050929
  3. ZONEGRAN [Concomitant]
  4. VALPROIC ACID [Concomitant]
  5. TRILEPTAL [Concomitant]

REACTIONS (9)
  - ABNORMAL BEHAVIOUR [None]
  - APPETITE DISORDER [None]
  - DEHYDRATION [None]
  - FAILURE TO THRIVE [None]
  - HEAD LAG ABNORMAL [None]
  - LETHARGY [None]
  - LIVER FUNCTION TEST ABNORMAL [None]
  - SKIN TURGOR DECREASED [None]
  - WEIGHT DECREASED [None]
